FAERS Safety Report 22118469 (Version 1)
Quarter: 2023Q1

REPORT INFORMATION
  Report Type: Spontaneous
  Country: DE (occurrence: DE)
  Receive Date: 20230321
  Receipt Date: 20230321
  Transmission Date: 20230417
  Serious: Yes (Other)
  Sender: FDA-Public Use
  Company Number: None

PATIENT
  Age: 68 Year
  Sex: Male
  Weight: 98 kg

DRUGS (1)
  1. ERLEADA [Suspect]
     Active Substance: APALUTAMIDE
     Indication: Prostate cancer metastatic
     Dosage: 240 MG/DIE (4 TABLETTEN A 60 MG)
     Route: 048
     Dates: start: 20230201, end: 20230219

REACTIONS (4)
  - Hypersensitivity vasculitis [Recovered/Resolved]
  - Vertigo [Recovered/Resolved]
  - Petechiae [Recovered/Resolved]
  - Oedema peripheral [Recovered/Resolved]

NARRATIVE: CASE EVENT DATE: 20230219
